FAERS Safety Report 5410690-2 (Version None)
Quarter: 2007Q3

REPORT INFORMATION
  Report Type: 
  Country: None (occurrence: None)
  Receive Date: 20070810
  Receipt Date: 20070605
  Transmission Date: 20080115
  Serious: No
  Sender: FDA-Public Use
  Company Number: A0654328A

PATIENT
  Age: 42 Year
  Sex: Female
  Weight: 59.1 kg

DRUGS (7)
  1. PAXIL [Suspect]
     Indication: DRUG USE FOR UNKNOWN INDICATION
     Route: 048
     Dates: start: 20050101
  2. LUNESTA [Suspect]
     Route: 048
     Dates: start: 20050414
  3. TENORMIN [Concomitant]
  4. UNKNOWN MEDICATION [Concomitant]
  5. ATIVAN [Concomitant]
  6. CALCIUM CHLORIDE [Concomitant]
  7. MAGNESIUM SULFATE [Concomitant]

REACTIONS (2)
  - INITIAL INSOMNIA [None]
  - NIGHTMARE [None]
